FAERS Safety Report 9003349 (Version 1)
Quarter: 2013Q1

REPORT INFORMATION
  Report Type: Spontaneous
  Country: US (occurrence: US)
  Receive Date: 20130108
  Receipt Date: 20130108
  Transmission Date: 20140127
  Serious: No
  Sender: FDA-Public Use
  Company Number: US-009507513-1301USA001412

PATIENT
  Sex: Female

DRUGS (4)
  1. SINGULAIR [Suspect]
  2. FEMHRT [Suspect]
     Route: 048
  3. SYNTHROID [Suspect]
  4. CHLORPHENIRAMINE MALEATE [Concomitant]

REACTIONS (4)
  - Insomnia [Unknown]
  - Feeling jittery [Unknown]
  - Drug interaction [Unknown]
  - Blood thyroid stimulating hormone increased [Unknown]
